FAERS Safety Report 12604841 (Version 7)
Quarter: 2017Q2

REPORT INFORMATION
  Report Type: Spontaneous
  Country: CL (occurrence: CL)
  Receive Date: 20160728
  Receipt Date: 20170627
  Transmission Date: 20170830
  Serious: Yes (Other)
  Sender: FDA-Public Use
  Company Number: CL-BIOMARINAP-CL-2016-110594

PATIENT
  Sex: Female
  Weight: 34 kg

DRUGS (2)
  1. ALDURAZYME [Suspect]
     Active Substance: LARONIDASE
     Indication: MUCOPOLYSACCHARIDOSIS I
     Dosage: UNK UNK, QW
     Route: 041
     Dates: start: 2014, end: 20170524
  2. ALDURAZYME [Suspect]
     Active Substance: LARONIDASE
     Dosage: UNK
     Route: 041
     Dates: start: 20170607

REACTIONS (19)
  - Platelet count decreased [Unknown]
  - Joint injury [Unknown]
  - Diarrhoea [Not Recovered/Not Resolved]
  - Aortic valve incompetence [Unknown]
  - Spinal cord injury [Unknown]
  - Hypersensitivity [Recovered/Resolved]
  - Mitral valve incompetence [Unknown]
  - Arthropathy [Not Recovered/Not Resolved]
  - Pyrexia [Not Recovered/Not Resolved]
  - Umbilical hernia [Recovered/Resolved]
  - Generalised erythema [Recovered/Resolved]
  - Eye disorder [Unknown]
  - Epistaxis [Recovered/Resolved]
  - Vomiting [Not Recovered/Not Resolved]
  - Arthralgia [Not Recovered/Not Resolved]
  - Viral infection [Not Recovered/Not Resolved]
  - Headache [Recovered/Resolved]
  - Fall [Unknown]
  - Arthritis [Unknown]
